FAERS Safety Report 10221185 (Version 1)
Quarter: 2014Q2

REPORT INFORMATION
  Report Type: Spontaneous
  Country: US (occurrence: US)
  Receive Date: 20140606
  Receipt Date: 20140606
  Transmission Date: 20141212
  Serious: No
  Sender: FDA-Public Use
  Company Number: US-GLAXOSMITHKLINE-A1063358A

PATIENT
  Sex: 0

DRUGS (1)
  1. BREO ELLIPTA [Suspect]
     Route: 055
     Dates: end: 201402

REACTIONS (2)
  - Dry throat [Unknown]
  - Dysphonia [Unknown]
